FAERS Safety Report 16540212 (Version 1)
Quarter: 2019Q3

REPORT INFORMATION
  Report Type: Report from Study
  Country: IT (occurrence: IT)
  Receive Date: 20190708
  Receipt Date: 20190708
  Transmission Date: 20191004
  Serious: Yes (Other)
  Sender: FDA-Public Use
  Company Number: IT-MYLANLABS-2019M1061757

PATIENT
  Age: 78 Year
  Sex: Male

DRUGS (8)
  1. CORDARONE [Concomitant]
     Active Substance: AMIODARONE HYDROCHLORIDE
     Dosage: 1 UNK
     Route: 048
  2. DOBETIN 500 MICROGRAMMI/ML SOLUZIONE INIETTABILE [Concomitant]
     Route: 058
  3. LOSARTAN IDROCLOROTIAZIDE ALMUS [Concomitant]
     Dosage: 1 DOSAGE FORM
     Route: 048
  4. AMLODIPINE [Concomitant]
     Active Substance: AMLODIPINE BESYLATE
     Dosage: 5 MILLIGRAM
     Route: 048
  5. NEORECORMON [Concomitant]
     Active Substance: ERYTHROPOIETIN
     Route: 058
  6. DIBASE [Concomitant]
     Active Substance: CHOLECALCIFEROL
     Dosage: UNK
     Route: 030
  7. ZOLEDRONIC ACID [Suspect]
     Active Substance: ZOLEDRONIC ACID
     Indication: PROPHYLAXIS
     Dosage: 4 MILLIGRAM, TOTAL
     Route: 058
     Dates: start: 20180626, end: 20180626
  8. EUTIROX [Concomitant]
     Active Substance: LEVOTHYROXINE SODIUM
     Dosage: 1 DOSAGE FORM
     Route: 048

REACTIONS (1)
  - Hyperpyrexia [Recovered/Resolved]

NARRATIVE: CASE EVENT DATE: 20180626
